FAERS Safety Report 13998577 (Version 2)
Quarter: 2017Q4

REPORT INFORMATION
  Report Type: Report from Study
  Country: US (occurrence: US)
  Receive Date: 20170921
  Receipt Date: 20171003
  Transmission Date: 20180321
  Serious: Yes (Other)
  Sender: FDA-Public Use
  Company Number: US-ASTRAZENECA-2017SE45067

PATIENT
  Age: 62 Year
  Sex: Female

DRUGS (10)
  1. OXYCODONE [Concomitant]
     Active Substance: OXYCODONE
  2. IRESSA [Suspect]
     Active Substance: GEFITINIB
     Indication: LUNG CARCINOMA CELL TYPE UNSPECIFIED STAGE 0
     Route: 048
     Dates: start: 20170327
  3. CHLORPROMAZINE. [Concomitant]
     Active Substance: CHLORPROMAZINE
  4. DEXAMETHASONE. [Concomitant]
     Active Substance: DEXAMETHASONE
  5. BREO ELLIPTA [Concomitant]
     Active Substance: FLUTICASONE FUROATE\VILANTEROL TRIFENATATE
  6. VITAMIN D [Concomitant]
     Active Substance: CHOLECALCIFEROL
  7. MORPHINE [Concomitant]
     Active Substance: MORPHINE
  8. IRESSA [Suspect]
     Active Substance: GEFITINIB
     Indication: LUNG CARCINOMA CELL TYPE UNSPECIFIED STAGE 0
     Route: 048
     Dates: start: 20170317
  9. PROBIOTIC [Concomitant]
     Active Substance: PROBIOTICS NOS
  10. ADVAIR DISKUS [Concomitant]
     Active Substance: FLUTICASONE PROPIONATE\SALMETEROL XINAFOATE

REACTIONS (7)
  - Acne [Unknown]
  - Skin exfoliation [Unknown]
  - Drug ineffective [Unknown]
  - Fatigue [Unknown]
  - Gene mutation [Unknown]
  - Dyspnoea [Unknown]
  - Nasal ulcer [Unknown]
